FAERS Safety Report 9938794 (Version 1)
Quarter: 2014Q1

REPORT INFORMATION
  Report Type: Report from Study
  Country: US (occurrence: US)
  Receive Date: 20140303
  Receipt Date: 20140303
  Transmission Date: 20141002
  Serious: No
  Sender: FDA-Public Use
  Company Number: US-ABBVIE-13P-163-1033338-00

PATIENT
  Age: 40 Year
  Sex: Male

DRUGS (4)
  1. HUMIRA [Suspect]
     Indication: PSORIASIS
     Route: 058
     Dates: start: 201211
  2. BISOPROLOL [Concomitant]
     Indication: BLOOD PRESSURE
     Dosage: 10-625MG
  3. CLOBETASOL [Concomitant]
     Indication: PSORIASIS
  4. FLUOCINONIDE [Concomitant]
     Indication: PSORIASIS

REACTIONS (2)
  - Inappropriate schedule of drug administration [Not Recovered/Not Resolved]
  - Toothache [Not Recovered/Not Resolved]
